FAERS Safety Report 21385179 (Version 1)
Quarter: 2022Q3

REPORT INFORMATION
  Report Type: Spontaneous
  Country: AU (occurrence: AU)
  Receive Date: 20220928
  Receipt Date: 20220928
  Transmission Date: 20221027
  Serious: Yes (Death, Life-Threatening, Other)
  Sender: FDA-Public Use
  Company Number: AU-AMGEN-AUSSP2022164147

PATIENT

DRUGS (3)
  1. CARFILZOMIB [Suspect]
     Active Substance: CARFILZOMIB
     Indication: Plasma cell myeloma recurrent
     Dosage: 70 MILLIGRAM/SQ. METER
     Route: 065
  2. BELANTAMAB MAFODOTIN [Suspect]
     Active Substance: BELANTAMAB MAFODOTIN
     Indication: Plasma cell myeloma recurrent
     Dosage: 2.5 MILLIGRAM/KILOGRAM
     Route: 065
  3. DEXAMETHASONE [Suspect]
     Active Substance: DEXAMETHASONE
     Indication: Plasma cell myeloma recurrent
     Dosage: 40 MILLIGRAM, QWK
     Route: 065

REACTIONS (14)
  - Plasma cell myeloma [Fatal]
  - Death [Fatal]
  - Thrombocytopenia [Unknown]
  - Vision blurred [Unknown]
  - Neutropenia [Unknown]
  - Neuropathy peripheral [Unknown]
  - Upper respiratory tract infection [Unknown]
  - Dry eye [Unknown]
  - Nausea [Unknown]
  - Keratopathy [Unknown]
  - Visual acuity reduced [Unknown]
  - Corneal toxicity [Unknown]
  - Adverse event [Unknown]
  - Therapy partial responder [Unknown]
